FAERS Safety Report 24322312 (Version 2)
Quarter: 2024Q3

REPORT INFORMATION
  Report Type: Spontaneous
  Country: US (occurrence: US)
  Receive Date: 20240916
  Receipt Date: 20240919
  Transmission Date: 20241016
  Serious: Yes (Other)
  Sender: ABBVIE
  Company Number: US-ABBVIE-5920750

PATIENT
  Age: 69 Year
  Sex: Male
  Weight: 88 kg

DRUGS (14)
  1. RINVOQ [Suspect]
     Active Substance: UPADACITINIB
     Indication: Product used for unknown indication
     Route: 048
     Dates: start: 202207
  2. Cordarone (Amiodarone hydrochloride) [Concomitant]
     Indication: Product used for unknown indication
     Dosage: 200 MG TABLET TAKE 2 (TWO) TABLETS (400 MG TOTAL) BY MOUTH, TWO TIMES A DAY WITH MEALS FOR 4 DAYS...
     Route: 048
  3. Cordarone (Amiodarone hydrochloride) [Concomitant]
     Indication: Product used for unknown indication
     Dosage: ONE TABLET, 200 MG TOTAL, TWO TIMES A DAY WITH MEALS FOR 7 DAYS, DAILY WITH BREAKFAST.?FORM STREN...
     Route: 048
  4. Cordarone (Amiodarone hydrochloride) [Concomitant]
     Indication: Product used for unknown indication
     Dosage: ONE TABLET, 200 MG TOTAL, DAILY WITH BREAKFAST.?FORM STRENGTH 200MG
     Route: 048
  5. ELIQUIS [Concomitant]
     Active Substance: APIXABAN
     Indication: Product used for unknown indication
     Dosage: ONE TABLET 5 MG TOTAL BY MOUTH
     Route: 050
  6. Bumex (Bumetanide) [Concomitant]
     Indication: Product used for unknown indication
     Dosage: MAY ALSO TAKE ONE TABLET 2 MG TOTAL DAILY AS NEEDED
     Route: 048
  7. FERROUS SULFATE [Concomitant]
     Active Substance: FERROUS SULFATE
     Indication: Product used for unknown indication
     Dosage: 65 FE MG TABLET WITH BREAKFAST
     Route: 048
     Dates: start: 20240810
  8. TOPROL XL [Concomitant]
     Active Substance: METOPROLOL SUCCINATE
     Indication: Product used for unknown indication
     Route: 048
  9. TOPROL XL [Concomitant]
     Active Substance: METOPROLOL SUCCINATE
     Indication: Product used for unknown indication
     Dosage: 100 MG 24 HR TABLET
     Route: 048
  10. K dur (Potassium chloride) [Concomitant]
     Indication: Product used for unknown indication
     Dosage: 20 MEQ TABLET, TAKE ONE TABLET, 20 MEQ TOTAL BY MOUTH DAILY
     Route: 048
  11. Klor con (Potassium chloride) [Concomitant]
     Indication: Product used for unknown indication
     Dosage: 20 MEQ TABLET, TAKE ONE TABLET, 20 MEQ TOTAL BY MOUTH DAILY
     Route: 048
  12. ALBUTEROL [Concomitant]
     Active Substance: ALBUTEROL
     Indication: Product used for unknown indication
     Dosage: 90 MCG/ACTUATION INHALER INHALE TWO PUFFS EVERY SIX HOURS AS NEEDED
     Route: 055
  13. ALDACTONE [Concomitant]
     Active Substance: SPIRONOLACTONE
     Indication: Product used for unknown indication
     Route: 048
  14. Entresto (Sacubitril;Valsartan) [Concomitant]
     Indication: Product used for unknown indication
     Dosage: 24-26 MG PER TABLET
     Route: 048

REACTIONS (1)
  - Cardiac arrest [Unknown]

NARRATIVE: CASE EVENT DATE: 20240819
